FAERS Safety Report 7514615-5 (Version None)
Quarter: 2011Q2

REPORT INFORMATION
  Report Type: 
  Country: None (occurrence: None)
  Receive Date: 20110520
  Receipt Date: 20110511
  Transmission Date: 20111010
  Serious: Yes (Hospitalization)
  Sender: FDA-Public Use
  Company Number: MPS1-1000511

PATIENT
  Age: 18 Year
  Sex: Female
  Weight: 43.5 kg

DRUGS (10)
  1. SODIUM CHLORIDE [Concomitant]
  2. ALDURAZYME [Suspect]
     Indication: MUCOPOLYSACCHARIDOSIS I
     Dosage: 17.4 MG, 1X/W, INTRAVENOUS
     Route: 042
     Dates: start: 20050408
  3. ACETAMINOPHEN [Concomitant]
  4. ALBUTEROL [Concomitant]
  5. DIPHENDRYL (AMMONIUM CHLORIDE, DIPHENHYDRAMINE HYDROCHLORIDE, SODIUM C [Concomitant]
  6. VICKS NYQUIL (DEXTROMETHORPHAN HYDROBROMIDE, DOXYLAMINE SUCCINATE, PAR [Concomitant]
  7. OXYGEN (OXYGEN) [Concomitant]
  8. HEPARIN [Concomitant]
  9. EPIPEN (EPINEPHRINE HYDROCHLORIDE) [Concomitant]
  10. ELA-MAX (LIDOCAINE) [Concomitant]

REACTIONS (2)
  - CORNEAL DISORDER [None]
  - RESPIRATORY DISTRESS [None]
